FAERS Safety Report 4430044-5 (Version None)
Quarter: 2004Q3

REPORT INFORMATION
  Report Type: 
  Country: None (occurrence: None)
  Receive Date: 20040820
  Receipt Date: 20040809
  Transmission Date: 20050211
  Serious: Yes (Hospitalization)
  Sender: FDA-Public Use
  Company Number: PHBS2004HU10602

PATIENT
  Age: 56 Year
  Sex: Female

DRUGS (2)
  1. METOPROLOL [Suspect]
     Indication: HYPERTENSION
     Dosage: 100 MG/DAY
  2. NICERGOLINE [Suspect]
     Dosage: 20 MG/DAY

REACTIONS (6)
  - CHEST PAIN [None]
  - DYSPNOEA [None]
  - ELECTROCARDIOGRAM ST SEGMENT ELEVATION [None]
  - HEADACHE [None]
  - HYPERHIDROSIS [None]
  - PRINZMETAL ANGINA [None]
